FAERS Safety Report 8329381 (Version 6)
Quarter: 2012Q4

REPORT INFORMATION
  Report Type: 
  Country: US (occurrence: US)
  Receive Date: 20120110
  Receipt Date: 20120921
  Transmission Date: 20130627
  Serious: Yes (Hospitalization, Disabling, Other)
  Sender: FDA-Public Use
  Company Number: US-009507513-1201USA00751

PATIENT

DRUGS (6)
  1. FOSAMAX [Suspect]
     Indication: OSTEOPOROSIS
     Dosage: 70 mg, qw
     Route: 048
     Dates: start: 20011113, end: 200610
  2. FOSAMAX [Suspect]
     Indication: OSTEOPENIA
  3. FOSAMAX PLUS D [Suspect]
     Indication: OSTEOPOROSIS
     Dosage: 2800 IU, qw
     Route: 048
     Dates: start: 20061109, end: 200905
  4. FOSAMAX PLUS D [Suspect]
     Indication: OSTEOPENIA
  5. ALENDRONATE SODIUM [Suspect]
     Indication: OSTEOPOROSIS
     Dosage: 70 mg, UNK
     Route: 048
     Dates: start: 20090629, end: 201001
  6. CALCIUM (UNSPECIFIED) [Concomitant]
     Indication: OSTEOPOROSIS
     Dosage: 1500 mg, qd
     Dates: start: 20011113, end: 2007

REACTIONS (46)
  - Femur fracture [Unknown]
  - Open reduction of fracture [Unknown]
  - Hip arthroplasty [Unknown]
  - Device failure [Unknown]
  - Joint dislocation [Unknown]
  - Anaemia postoperative [Unknown]
  - Poor quality sleep [Not Recovered/Not Resolved]
  - Osteoarthritis [Unknown]
  - Meniscus injury [Recovering/Resolving]
  - Low turnover osteopathy [Unknown]
  - Foot fracture [Unknown]
  - Tooth disorder [Unknown]
  - Hypothyroidism [Not Recovered/Not Resolved]
  - Adverse event [Unknown]
  - Type 2 diabetes mellitus [Unknown]
  - Exostosis [Unknown]
  - Dyslipidaemia [Unknown]
  - Ileal ulcer [Unknown]
  - Non-alcoholic steatohepatitis [Unknown]
  - Hypercalcaemia [Unknown]
  - Ear pain [Unknown]
  - Fatigue [Unknown]
  - High density lipoprotein decreased [Unknown]
  - Dyspnoea [Unknown]
  - Lymphadenopathy [Unknown]
  - Dysuria [Unknown]
  - Dry mouth [Unknown]
  - Paraesthesia [Unknown]
  - Rheumatoid arthritis [Unknown]
  - Insomnia [Unknown]
  - Bursitis [Unknown]
  - Anxiety [Unknown]
  - Joint injury [Unknown]
  - Bone disorder [Unknown]
  - Gastrooesophageal reflux disease [Unknown]
  - Musculoskeletal pain [Unknown]
  - Oedema peripheral [Unknown]
  - Pain in extremity [Unknown]
  - Arthralgia [Unknown]
  - Rash [Unknown]
  - Osteoarthritis [Unknown]
  - Arthroscopy [Unknown]
  - Meniscus removal [Unknown]
  - Chondroplasty [Unknown]
  - Burns second degree [Unknown]
  - Arthralgia [Unknown]
